FAERS Safety Report 24929133 (Version 1)
Quarter: 2025Q1

REPORT INFORMATION
  Report Type: Report from Study
  Country: BR (occurrence: BR)
  Receive Date: 20250205
  Receipt Date: 20250205
  Transmission Date: 20250408
  Serious: Yes (Other)
  Sender: JOHNSON AND JOHNSON
  Company Number: BR-JNJFOC-20250189204

PATIENT
  Age: 35 Year
  Sex: Male
  Weight: 140 kg

DRUGS (1)
  1. REMICADE [Suspect]
     Active Substance: INFLIXIMAB
     Indication: Ankylosing spondylitis
     Route: 041
     Dates: start: 2013

REACTIONS (7)
  - Eye irritation [Unknown]
  - Paraesthesia [Unknown]
  - Throat tightness [Unknown]
  - Infusion related reaction [Unknown]
  - Blood pressure increased [Unknown]
  - Ankylosing spondylitis [Unknown]
  - Pain [Unknown]
